FAERS Safety Report 18487833 (Version 6)
Quarter: 2021Q3

REPORT INFORMATION
  Report Type: Report from Study
  Country: US (occurrence: US)
  Receive Date: 20201110
  Receipt Date: 20210725
  Transmission Date: 20211014
  Serious: Yes (Hospitalization, Other)
  Sender: FDA-Public Use
  Company Number: NVSC2020US297609

PATIENT
  Sex: Male

DRUGS (1)
  1. ENTRESTO [Suspect]
     Active Substance: SACUBITRIL\VALSARTAN
     Indication: CARDIAC FAILURE CHRONIC
     Dosage: 1 DF, BID
     Route: 065
     Dates: start: 2018

REACTIONS (11)
  - Renal impairment [Unknown]
  - Bone cancer [Unknown]
  - Dysuria [Unknown]
  - Renal disorder [Unknown]
  - Plasma cell myeloma [Unknown]
  - Chronic kidney disease [Unknown]
  - Hypotension [Unknown]
  - Acute kidney injury [Unknown]
  - Renal failure [Unknown]
  - Oedema [Unknown]
  - Weight decreased [Unknown]
